FAERS Safety Report 12717158 (Version 9)
Quarter: 2018Q4

REPORT INFORMATION
  Report Type: Spontaneous
  Country: DE (occurrence: DE)
  Receive Date: 20160906
  Receipt Date: 20181207
  Transmission Date: 20190204
  Serious: Yes (Other)
  Sender: FDA-Public Use
  Company Number: DE-ABBVIE-16P-062-1715907-00

PATIENT
  Age: 65 Year
  Sex: Female

DRUGS (16)
  1. ARTESUNATE [Interacting]
     Active Substance: ARTESUNATE
     Indication: MALARIA PROPHYLAXIS
     Route: 048
     Dates: start: 20150920, end: 20151020
  2. LORAZEPAM. [Suspect]
     Active Substance: LORAZEPAM
     Indication: PARTIAL SEIZURES
  3. TEMOZOLOMIDE. [Interacting]
     Active Substance: TEMOZOLOMIDE
     Indication: GLIOBLASTOMA MULTIFORME
     Route: 048
     Dates: start: 2014
  4. VALPROIC ACID. [Suspect]
     Active Substance: VALPROIC ACID
     Indication: EPILEPSY
     Route: 065
  5. TEMOZOLOMIDE. [Interacting]
     Active Substance: TEMOZOLOMIDE
     Route: 065
  6. LEVETIRACETAM. [Interacting]
     Active Substance: LEVETIRACETAM
     Indication: EPILEPSY
     Route: 065
  7. LEVETIRACETAM. [Interacting]
     Active Substance: LEVETIRACETAM
     Route: 065
  8. TEMOZOLOMIDE. [Interacting]
     Active Substance: TEMOZOLOMIDE
     Route: 065
  9. ARTESUNATE [Interacting]
     Active Substance: ARTESUNATE
     Indication: GLIOBLASTOMA MULTIFORME
  10. COPTIS-KUSH [Interacting]
     Active Substance: HERBALS
     Indication: PRODUCT USED FOR UNKNOWN INDICATION
     Route: 065
  11. LORAZEPAM. [Suspect]
     Active Substance: LORAZEPAM
     Indication: EPILEPSY
     Route: 048
  12. ONDANSETRON [Suspect]
     Active Substance: ONDANSETRON
     Indication: PROPHYLAXIS OF NAUSEA AND VOMITING
     Route: 065
  13. CLOBAZAM. [Suspect]
     Active Substance: CLOBAZAM
     Indication: EPILEPSY
     Route: 048
  14. LEVETIRACETAM. [Interacting]
     Active Substance: LEVETIRACETAM
     Indication: PARTIAL SEIZURES
     Route: 065
  15. CLOBAZAM. [Suspect]
     Active Substance: CLOBAZAM
     Indication: PARTIAL SEIZURES
  16. VALPROIC ACID. [Interacting]
     Active Substance: VALPROIC ACID
     Indication: GLIOBLASTOMA MULTIFORME

REACTIONS (21)
  - Dyspepsia [Unknown]
  - Chest pain [Unknown]
  - Aspartate aminotransferase increased [Recovered/Resolved]
  - White blood cell count decreased [Recovered/Resolved]
  - Weight decreased [Recovered/Resolved]
  - Overdose [Unknown]
  - Condition aggravated [Unknown]
  - Drug interaction [Recovered/Resolved]
  - Intentional product misuse [Unknown]
  - Nausea [Unknown]
  - Asthenia [Unknown]
  - Drug-induced liver injury [Unknown]
  - Depressed mood [Recovered/Resolved]
  - Monocyte count decreased [Unknown]
  - Fatigue [Unknown]
  - Hepatic enzyme increased [Unknown]
  - Gamma-glutamyltransferase increased [Recovered/Resolved]
  - Blood lactate dehydrogenase increased [Recovered/Resolved]
  - Hepatotoxicity [Recovered/Resolved]
  - Alanine aminotransferase increased [Recovered/Resolved]
  - Leukopenia [Unknown]

NARRATIVE: CASE EVENT DATE: 20150101
